FAERS Safety Report 9961266 (Version 1)
Quarter: 2014Q1

REPORT INFORMATION
  Report Type: Spontaneous
  Country: CG (occurrence: CG)
  Receive Date: 20140305
  Receipt Date: 20140305
  Transmission Date: 20141002
  Serious: Yes (Hospitalization, Other)
  Sender: FDA-Public Use
  Company Number: CG-009507513-1402COG012353

PATIENT
  Age: 53 Year
  Sex: Male

DRUGS (1)
  1. IVERMECTIN [Suspect]
     Indication: ONCHOCERCIASIS
     Dosage: 4 TABLETS ONCE
     Route: 048
     Dates: start: 20131213, end: 20131213

REACTIONS (7)
  - Arthralgia [Recovered/Resolved]
  - Aphasia [Recovered/Resolved]
  - Incontinence [Recovered/Resolved]
  - Asthenia [Recovered/Resolved]
  - Conjunctival haemorrhage [Recovered/Resolved]
  - Pyrexia [Recovered/Resolved]
  - Nervous system disorder [Recovered/Resolved]
